FAERS Safety Report 19932927 (Version 1)
Quarter: 2021Q4

REPORT INFORMATION
  Report Type: Spontaneous
  Country: US (occurrence: US)
  Receive Date: 20211007
  Receipt Date: 20211007
  Transmission Date: 20220303
  Serious: Yes (Hospitalization)
  Sender: FDA-Public Use
  Company Number: None

PATIENT
  Age: 78 Year
  Sex: Male
  Weight: 74.8 kg

DRUGS (1)
  1. ENHERTU [Suspect]
     Active Substance: FAM-TRASTUZUMAB DERUXTECAN-NXKI
     Indication: Neuroendocrine carcinoma
     Dosage: ?          OTHER FREQUENCY:EVERY 21 DAY;
     Route: 042
     Dates: start: 20210927, end: 20210927

REACTIONS (2)
  - Infusion related reaction [None]
  - Acute myocardial infarction [None]

NARRATIVE: CASE EVENT DATE: 20210927
